FAERS Safety Report 6031111-5 (Version None)
Quarter: 2008Q4

REPORT INFORMATION
  Report Type: 
  Country: None (occurrence: None)
  Receive Date: 20081222
  Receipt Date: 20081014
  Transmission Date: 20090506
  Serious: No
  Sender: FDA-Public Use
  Company Number: US-WYE-H06385308

PATIENT
  Age: 77 Year
  Sex: Female
  Weight: 37.68 kg

DRUGS (7)
  1. PRISTIQ [Suspect]
     Indication: ANXIETY
     Dosage: 50 MG, ORAL
     Route: 048
     Dates: start: 20081013, end: 20081014
  2. COREG [Concomitant]
  3. POTASSIUM (POTASSIUM) [Concomitant]
  4. MAGNESIUM (MAGNESIUM) [Concomitant]
  5. HYDROCHLOROTHIAZIDE [Concomitant]
  6. CALTRATE 600 + VITAMIN D (CALCIUM CARBONATE/VITAMIN D) [Concomitant]
  7. ZOCOR [Concomitant]

REACTIONS (10)
  - BALANCE DISORDER [None]
  - CHEST PAIN [None]
  - DRY MOUTH [None]
  - GAIT DISTURBANCE [None]
  - INSOMNIA [None]
  - MALAISE [None]
  - MOTION SICKNESS [None]
  - NAUSEA [None]
  - NECK PAIN [None]
  - PAIN [None]
